FAERS Safety Report 6589811-4 (Version None)
Quarter: 2010Q1

REPORT INFORMATION
  Report Type: 
  Country: None (occurrence: None)
  Receive Date: 20100219
  Receipt Date: 20100201
  Transmission Date: 20100710
  Serious: No
  Sender: FDA-Public Use
  Company Number: US-JNJFOC-20100201960

PATIENT
  Sex: Male
  Weight: 64.41 kg

DRUGS (10)
  1. DURAGESIC-100 [Suspect]
     Indication: OSTEOPOROSIS
     Route: 062
  2. DURAGESIC-100 [Suspect]
     Route: 062
  3. DURAGESIC-100 [Suspect]
     Indication: SCOLIOSIS
     Route: 062
  4. DURAGESIC-100 [Suspect]
     Route: 062
  5. DURAGESIC-100 [Suspect]
     Indication: FIBROMYALGIA
     Route: 062
  6. DURAGESIC-100 [Suspect]
     Route: 062
  7. LYRICA [Concomitant]
     Indication: FIBROMYALGIA
     Route: 048
  8. CYMBALTA [Concomitant]
     Indication: FIBROMYALGIA
     Route: 048
  9. CELEBREX [Concomitant]
     Indication: BACK PAIN
     Route: 048
  10. KLONOPIN [Concomitant]
     Indication: FIBROMYALGIA
     Route: 048

REACTIONS (1)
  - WRONG TECHNIQUE IN DRUG USAGE PROCESS [None]
